FAERS Safety Report 23663706 (Version 1)
Quarter: 2024Q1

REPORT INFORMATION
  Report Type: Spontaneous
  Country: DE (occurrence: DE)
  Receive Date: 20240322
  Receipt Date: 20240322
  Transmission Date: 20240410
  Serious: Yes (Other)
  Sender: FDA-Public Use
  Company Number: DE-PFIZER INC-202400066611

PATIENT
  Age: 66 Year
  Sex: Male

DRUGS (3)
  1. MINOXIDIL [Suspect]
     Active Substance: MINOXIDIL
     Dosage: 7.5 MG, 2X/DAY
  2. CLONIDINE [Concomitant]
     Active Substance: CLONIDINE
     Dosage: UNK
  3. CANDESARTAN [Concomitant]
     Active Substance: CANDESARTAN
     Dosage: UNK

REACTIONS (4)
  - Haemorrhoids [Unknown]
  - Post procedural haemorrhage [Unknown]
  - Hypotension [Unknown]
  - Loss of consciousness [Unknown]

NARRATIVE: CASE EVENT DATE: 20240301
